FAERS Safety Report 8929224 (Version 1)
Quarter: 2012Q4

REPORT INFORMATION
  Report Type: Spontaneous
  Country: US (occurrence: None)
  Receive Date: 20121126
  Receipt Date: 20121126
  Transmission Date: 20130627
  Serious: Yes (Disabling)
  Sender: FDA-Public Use
  Company Number: None

PATIENT
  Sex: Male
  Weight: 78.93 kg

DRUGS (1)
  1. OMEPRAZOLE [Suspect]
     Indication: GERD
     Dates: start: 1999, end: 2012

REACTIONS (5)
  - Tooth extraction [None]
  - Teeth brittle [None]
  - Artificial crown procedure [None]
  - Dental caries [None]
  - Endodontic procedure [None]
